FAERS Safety Report 6859684-0 (Version None)
Quarter: 2010Q3

REPORT INFORMATION
  Report Type: 
  Country: None (occurrence: None)
  Receive Date: 20100720
  Receipt Date: 20100708
  Transmission Date: 20110219
  Serious: Yes (Death)
  Sender: FDA-Public Use
  Company Number: JP-AMGEN-QUU424561

PATIENT
  Sex: Male
  Weight: 54 kg

DRUGS (8)
  1. ENBREL [Suspect]
     Indication: RHEUMATOID ARTHRITIS
     Route: 058
     Dates: start: 20080929, end: 20090623
  2. ENBREL [Suspect]
     Route: 058
     Dates: start: 20090711, end: 20100417
  3. FOLIAMIN [Concomitant]
     Route: 048
     Dates: start: 20080724
  4. TAKEPRON [Concomitant]
     Route: 048
     Dates: start: 20080622, end: 20090220
  5. PREDONINE [Concomitant]
     Route: 048
     Dates: start: 20090622
  6. CALONAL [Concomitant]
     Route: 048
     Dates: start: 20080802
  7. RHEUMATREX [Concomitant]
     Route: 048
     Dates: start: 20080721
  8. BENET [Concomitant]
     Route: 048
     Dates: start: 20081104, end: 20090605

REACTIONS (1)
  - SMALL CELL CARCINOMA [None]
